FAERS Safety Report 26088403 (Version 2)
Quarter: 2025Q4

REPORT INFORMATION
  Report Type: Spontaneous
  Country: KR (occurrence: KR)
  Receive Date: 20251125
  Receipt Date: 20251127
  Transmission Date: 20260118
  Serious: Yes (Disabling)
  Sender: ELI LILLY AND COMPANY
  Company Number: KR-ELI_LILLY_AND_COMPANY-KR202511019010

PATIENT

DRUGS (2)
  1. HUMULIN N [Suspect]
     Active Substance: INSULIN HUMAN
     Indication: Product used for unknown indication
     Dosage: UNK UNK, BID
     Route: 065
  2. HUMULIN R [Suspect]
     Active Substance: INSULIN HUMAN
     Indication: Product used for unknown indication
     Dosage: UNK UNK, BID
     Route: 065

REACTIONS (3)
  - Aphasia [Not Recovered/Not Resolved]
  - Pain [Unknown]
  - Drug ineffective [Not Recovered/Not Resolved]
